FAERS Safety Report 24848508 (Version 1)
Quarter: 2025Q1

REPORT INFORMATION
  Report Type: Spontaneous
  Country: US (occurrence: US)
  Receive Date: 20250116
  Receipt Date: 20250116
  Transmission Date: 20250409
  Serious: Yes (Other)
  Sender: DR REDDYS
  Company Number: US-DRL-USA-USA/2025/01/000598

PATIENT
  Age: 46 Year
  Sex: Male

DRUGS (10)
  1. DOXYCYCLINE [Suspect]
     Active Substance: DOXYCYCLINE
     Indication: Corneal erosion
     Route: 048
  2. TOBRAMYCIN [Suspect]
     Active Substance: TOBRAMYCIN
     Indication: Corneal infiltrates
  3. TOBRAMYCIN [Suspect]
     Active Substance: TOBRAMYCIN
     Indication: Hypopyon
  4. MOXIFLOXACIN [Suspect]
     Active Substance: MOXIFLOXACIN
     Indication: Corneal erosion
     Route: 061
  5. PREDNISOLONE ACETATE [Suspect]
     Active Substance: PREDNISOLONE ACETATE
     Indication: Corneal erosion
  6. KETOROLAC [Suspect]
     Active Substance: KETOROLAC TROMETHAMINE
     Indication: Corneal erosion
     Dosage: OS
  7. AMPHOTERICIN B [Suspect]
     Active Substance: AMPHOTERICIN B
     Indication: Corneal infiltrates
     Route: 061
  8. AMPHOTERICIN B [Suspect]
     Active Substance: AMPHOTERICIN B
     Indication: Hypopyon
  9. VANCOMYCIN [Suspect]
     Active Substance: VANCOMYCIN
     Indication: Corneal infiltrates
  10. VANCOMYCIN [Suspect]
     Active Substance: VANCOMYCIN
     Indication: Hypopyon

REACTIONS (4)
  - Hypopyon [Unknown]
  - Eye infection fungal [Unknown]
  - Corneal infiltrates [Recovered/Resolved]
  - Drug ineffective for unapproved indication [Unknown]
